FAERS Safety Report 14634413 (Version 1)
Quarter: 2018Q1

REPORT INFORMATION
  Report Type: Spontaneous
  Country: US (occurrence: US)
  Receive Date: 20180314
  Receipt Date: 20180314
  Transmission Date: 20180509
  Serious: No
  Sender: FDA-Public Use
  Company Number: US-TAKEDA-2018TUS005633

PATIENT
  Sex: Female

DRUGS (1)
  1. ENTYVIO [Suspect]
     Active Substance: VEDOLIZUMAB
     Indication: CROHN^S DISEASE
     Dosage: 300 MG, UNK
     Route: 042
     Dates: start: 20180223

REACTIONS (7)
  - Constipation [Unknown]
  - Nasal congestion [Unknown]
  - Head discomfort [Unknown]
  - Nausea [Unknown]
  - Off label use [Unknown]
  - Oropharyngeal pain [Unknown]
  - Vomiting [Unknown]
